FAERS Safety Report 16406591 (Version 1)
Quarter: 2019Q2

REPORT INFORMATION
  Report Type: Report from Study
  Country: CA (occurrence: CA)
  Receive Date: 20190607
  Receipt Date: 20190607
  Transmission Date: 20190711
  Serious: Yes (Hospitalization, Other)
  Sender: FDA-Public Use
  Company Number: CA-PFIZER INC-2019243066

PATIENT
  Age: 45 Year
  Sex: Female

DRUGS (5)
  1. MORPHINE [Interacting]
     Active Substance: MORPHINE
     Dosage: UNK
     Route: 048
  2. METHYLPREDNISOLONE SODIUM SUCCINATE. [Interacting]
     Active Substance: METHYLPREDNISOLONE SODIUM SUCCINATE
     Dosage: UNK
     Route: 042
  3. OCREVUS [Interacting]
     Active Substance: OCRELIZUMAB
     Indication: RELAPSING-REMITTING MULTIPLE SCLEROSIS
     Dosage: 300 MG, 1 EVERY 2 WEEKS
     Route: 042
  4. EFFEXOR [Suspect]
     Active Substance: VENLAFAXINE HYDROCHLORIDE
     Dosage: UNK
  5. LORAZEPAM. [Interacting]
     Active Substance: LORAZEPAM
     Dosage: UNK

REACTIONS (6)
  - Back pain [Unknown]
  - Sciatica [Unknown]
  - Ill-defined disorder [Unknown]
  - Fatigue [Unknown]
  - Overdose [Unknown]
  - Drug interaction [Unknown]
